FAERS Safety Report 8801001 (Version 2)
Quarter: 2015Q2

REPORT INFORMATION
  Report Type: Report from Study
  Country: US (occurrence: US)
  Receive Date: 20120920
  Receipt Date: 20150618
  Transmission Date: 20150821
  Serious: Yes (Hospitalization)
  Sender: FDA-Public Use
  Company Number: US-ROCHE-1123352

PATIENT
  Sex: Male

DRUGS (5)
  1. AVASTIN [Suspect]
     Active Substance: BEVACIZUMAB
     Indication: COLORECTAL CANCER
  2. LEUCOVORIN [Concomitant]
     Active Substance: LEUCOVORIN
  3. AVASTIN [Suspect]
     Active Substance: BEVACIZUMAB
     Indication: COLON CANCER
     Route: 042
  4. OXALIPLATIN. [Concomitant]
     Active Substance: OXALIPLATIN
  5. 5-FLUOROURACIL [Concomitant]
     Active Substance: FLUOROURACIL

REACTIONS (3)
  - Disease progression [Unknown]
  - Full blood count decreased [Unknown]
  - Nephrolithiasis [Unknown]
